FAERS Safety Report 9725744 (Version 3)
Quarter: 2014Q1

REPORT INFORMATION
  Report Type: Spontaneous
  Country: DE (occurrence: DE)
  Receive Date: 20131203
  Receipt Date: 20140212
  Transmission Date: 20141002
  Serious: Yes (Other)
  Sender: FDA-Public Use
  Company Number: DE-JNJFOC-20131116458

PATIENT
  Age: 64 Year
  Sex: Male
  Weight: 78 kg

DRUGS (7)
  1. XARELTO [Suspect]
     Indication: EMBOLISM VENOUS
     Route: 048
     Dates: start: 201309, end: 201311
  2. XARELTO [Suspect]
     Indication: PULMONARY EMBOLISM
     Route: 048
     Dates: start: 201309, end: 201311
  3. XARELTO [Suspect]
     Indication: DEEP VEIN THROMBOSIS
     Route: 048
     Dates: start: 201309, end: 201311
  4. ATENOLOL [Concomitant]
     Indication: HYPERTENSION
     Route: 048
  5. L-THYROXIN [Concomitant]
     Indication: THYROID DISORDER
     Route: 048
  6. RABEPRAZOLE [Concomitant]
     Indication: GASTROOESOPHAGEAL REFLUX DISEASE
     Route: 048
  7. SALOFALK [Concomitant]
     Indication: COLITIS ULCERATIVE
     Route: 048

REACTIONS (3)
  - Pulmonary hypertension [Recovering/Resolving]
  - Pulmonary embolism [Recovering/Resolving]
  - Pleural effusion [Unknown]
